FAERS Safety Report 7487486-3 (Version None)
Quarter: 2011Q2

REPORT INFORMATION
  Report Type: 
  Country: None (occurrence: None)
  Receive Date: 20110518
  Receipt Date: 20110513
  Transmission Date: 20111010
  Serious: Yes (Life-Threatening, Hospitalization, Other)
  Sender: FDA-Public Use
  Company Number: US-ELI_LILLY_AND_COMPANY-US201105004548

PATIENT
  Sex: Female

DRUGS (3)
  1. HUMULIN N [Suspect]
  2. HUMALOG [Suspect]
     Indication: DIABETES MELLITUS
     Dosage: UNK
  3. HUMALOG [Suspect]

REACTIONS (12)
  - EYE DISORDER [None]
  - CEREBROVASCULAR ACCIDENT [None]
  - THROMBOSIS [None]
  - TRANSPLANT REJECTION [None]
  - FIBROMYALGIA [None]
  - NEUROPATHY PERIPHERAL [None]
  - HYPOTENSION [None]
  - IRRITABILITY [None]
  - INTRAOCULAR LENS IMPLANT [None]
  - PAIN [None]
  - EMBOLISM [None]
  - VISUAL IMPAIRMENT [None]
